FAERS Safety Report 6707435-2 (Version None)
Quarter: 2010Q2

REPORT INFORMATION
  Report Type: 
  Country: None (occurrence: None)
  Receive Date: 20100503
  Receipt Date: 20090313
  Transmission Date: 20101027
  Serious: No
  Sender: FDA-Public Use
  Company Number: US-ASTRAZENECA-2009UW06688

PATIENT
  Age: 69 Year
  Sex: Female
  Weight: 64.9 kg

DRUGS (6)
  1. NEXIUM [Suspect]
     Indication: GASTROOESOPHAGEAL REFLUX DISEASE
     Route: 048
  2. TRILEPTAL [Concomitant]
  3. LASIX [Concomitant]
  4. ZOCOR [Concomitant]
  5. VISTARIL [Concomitant]
  6. ZOLOFT [Concomitant]

REACTIONS (3)
  - INSOMNIA [None]
  - THROAT IRRITATION [None]
  - VERTIGO [None]
